FAERS Safety Report 9945008 (Version 1)
Quarter: 2014Q1

REPORT INFORMATION
  Report Type: Report from Study
  Country: US (occurrence: US)
  Receive Date: 20140303
  Receipt Date: 20140303
  Transmission Date: 20141002
  Serious: No
  Sender: FDA-Public Use
  Company Number: US-ABBVIE-13P-163-1054507-00

PATIENT
  Age: 57 Year
  Sex: Male
  Weight: 65.83 kg

DRUGS (4)
  1. HUMIRA [Suspect]
     Indication: RHEUMATOID ARTHRITIS
     Dates: start: 201212, end: 201301
  2. BENECAR [Concomitant]
     Indication: BLOOD PRESSURE
  3. ALBUTEROL [Concomitant]
     Indication: ASTHMA
     Route: 055
  4. ALVESCO [Concomitant]
     Indication: ASTHMA

REACTIONS (4)
  - Local swelling [Recovered/Resolved]
  - Local swelling [Recovered/Resolved]
  - Local swelling [Recovered/Resolved]
  - Local swelling [Recovered/Resolved]
